FAERS Safety Report 5441278-5 (Version None)
Quarter: 2007Q3

REPORT INFORMATION
  Report Type: 
  Country: None (occurrence: None)
  Receive Date: 20070901
  Receipt Date: 20070822
  Transmission Date: 20080115
  Serious: Yes (Other)
  Sender: FDA-Public Use
  Company Number: US-PFIZER INC-2007071716

PATIENT
  Sex: Female
  Weight: 81.818 kg

DRUGS (5)
  1. CHANTIX [Suspect]
     Indication: SMOKING CESSATION THERAPY
     Route: 048
  2. KLONOPIN [Concomitant]
  3. SYNTHROID [Concomitant]
  4. ANTIHYPERTENSIVES [Concomitant]
  5. CITRACAL [Concomitant]

REACTIONS (8)
  - BURNING SENSATION [None]
  - CHAPPED LIPS [None]
  - LIP BLISTER [None]
  - LIP SWELLING [None]
  - OEDEMA MOUTH [None]
  - ORAL DISCOMFORT [None]
  - ORAL MUCOSAL BLISTERING [None]
  - STOMATITIS [None]
